FAERS Safety Report 7829470-3 (Version None)
Quarter: 2011Q4

REPORT INFORMATION
  Report Type: 
  Country: None (occurrence: None)
  Receive Date: 20111020
  Receipt Date: 20111018
  Transmission Date: 20120403
  Serious: Yes (Hospitalization)
  Sender: FDA-Public Use
  Company Number: DE-ROCHE-1005446

PATIENT
  Age: 51 Year
  Sex: Female
  Weight: 60 kg

DRUGS (4)
  1. ACTEMRA [Suspect]
     Indication: RHEUMATOID ARTHRITIS
     Route: 042
     Dates: start: 20110905
  2. DEKRISTOL [Concomitant]
     Dates: start: 20100128
  3. FOLSAURE [Concomitant]
     Dates: start: 20110712
  4. OMEPRAZOLE [Concomitant]
     Dates: start: 20100520

REACTIONS (1)
  - MIGRAINE [None]
